FAERS Safety Report 8053154-2 (Version None)
Quarter: 2012Q1

REPORT INFORMATION
  Report Type: 
  Country: None (occurrence: None)
  Receive Date: 20120118
  Receipt Date: 20120110
  Transmission Date: 20120608
  Serious: Yes (Other)
  Sender: FDA-Public Use
  Company Number: US-US-EMD SERONO, INC.-7106592

PATIENT
  Sex: Female

DRUGS (3)
  1. IBUPROFEN (ADVIL) [Concomitant]
     Indication: PREMEDICATION
  2. REBIF [Suspect]
     Indication: MULTIPLE SCLEROSIS
     Route: 058
     Dates: start: 20111119
  3. KLONOPIN [Concomitant]
     Indication: ANXIETY

REACTIONS (13)
  - EAR PAIN [None]
  - MITRAL VALVE INCOMPETENCE [None]
  - BLOOD CHOLESTEROL INCREASED [None]
  - HEADACHE [None]
  - INJECTION SITE ERYTHEMA [None]
  - INJECTION SITE PAIN [None]
  - BLOOD TRIGLYCERIDES INCREASED [None]
  - CHEST PAIN [None]
  - INJECTION SITE WARMTH [None]
  - THIRST [None]
  - WEIGHT INCREASED [None]
  - DEPRESSION [None]
  - OROPHARYNGEAL PAIN [None]
